FAERS Safety Report 16937317 (Version 1)
Quarter: 2019Q4

REPORT INFORMATION
  Report Type: Spontaneous
  Country: FR (occurrence: FR)
  Receive Date: 20191018
  Receipt Date: 20191018
  Transmission Date: 20200122
  Serious: Yes (Death, Other)
  Sender: FDA-Public Use
  Company Number: FR-JNJFOC-20191018061

PATIENT
  Age: 64 Year
  Sex: Male

DRUGS (52)
  1. HALDOL [Suspect]
     Active Substance: HALOPERIDOL
     Indication: PRODUCT USED FOR UNKNOWN INDICATION
     Dosage: MAXIMUM 3 AMP/24H
     Route: 065
     Dates: start: 20160208
  2. NOZINAN                            /00038601/ [Suspect]
     Active Substance: LEVOMEPROMAZINE
     Dosage: 130 GTTES/J PUIS 150
     Route: 048
     Dates: start: 20160301
  3. VALIUM [Concomitant]
     Active Substance: DIAZEPAM
     Indication: SEDATIVE THERAPY
     Dosage: 30 GTTES/J
     Route: 065
     Dates: start: 20160226
  4. VALIUM [Concomitant]
     Active Substance: DIAZEPAM
     Dosage: MAXIMUM 30 MG/24H
     Route: 042
     Dates: start: 20160208, end: 20160208
  5. VALIUM [Concomitant]
     Active Substance: DIAZEPAM
     Dosage: 90 GTTES/J
     Route: 065
     Dates: start: 20160206, end: 20160215
  6. LOXAPAC                            /00401801/ [Concomitant]
     Active Substance: LOXAPINE
     Dosage: 150 GTTES/J
     Route: 048
     Dates: start: 20160207
  7. TERCIAN                            /00759301/ [Concomitant]
     Active Substance: CYAMEMAZINE
     Dosage: MAXIMUM 100 GTTES/24H
     Route: 048
     Dates: start: 20160213
  8. NOZINAN                            /00038601/ [Suspect]
     Active Substance: LEVOMEPROMAZINE
     Dosage: MAX200 DROPS/D
     Route: 048
     Dates: start: 20160301
  9. NOZINAN                            /00038601/ [Suspect]
     Active Substance: LEVOMEPROMAZINE
     Dosage: 225 GTTES/J
     Route: 048
     Dates: start: 20160303
  10. NOZINAN                            /00038601/ [Suspect]
     Active Substance: LEVOMEPROMAZINE
     Dosage: 140 GTTES/J
     Route: 048
     Dates: start: 20160309
  11. NOZINAN                            /00038601/ [Suspect]
     Active Substance: LEVOMEPROMAZINE
     Dosage: MAXIMUM 4 AMP/24H
     Route: 048
     Dates: start: 20160302
  12. NOZINAN                            /00038601/ [Suspect]
     Active Substance: LEVOMEPROMAZINE
     Dosage: MAXIMUM 10 AMP/24H
     Route: 048
     Dates: start: 20160227
  13. VALPROATE [Concomitant]
     Active Substance: VALPROIC ACID
     Indication: PRODUCT USED FOR UNKNOWN INDICATION
     Dosage: 1000 MG/J
     Route: 048
     Dates: start: 20160222
  14. VALPROATE [Concomitant]
     Active Substance: VALPROIC ACID
     Dosage: 2000 MJ/J
     Route: 048
     Dates: start: 20160229
  15. PHENERGAN [Concomitant]
     Active Substance: PROMETHAZINE HYDROCHLORIDE
     Route: 042
     Dates: start: 20160218, end: 20160226
  16. LOXAPAC                            /00401801/ [Concomitant]
     Active Substance: LOXAPINE
     Dosage: MAXIMUM 6 AMP/24H
     Route: 065
     Dates: start: 20160212
  17. HALDOL [Suspect]
     Active Substance: HALOPERIDOL
     Dosage: MAXIMUM 3 AMP/24H
     Route: 065
     Dates: start: 20160211, end: 20160226
  18. VALIUM [Concomitant]
     Active Substance: DIAZEPAM
     Dosage: 105 GTTES/J
     Route: 065
     Dates: start: 20160307
  19. VALIUM [Concomitant]
     Active Substance: DIAZEPAM
     Dosage: MAXIMUM 90 PUIS 60 GTTES/24H
     Route: 065
     Dates: start: 20160206
  20. VALIUM [Concomitant]
     Active Substance: DIAZEPAM
     Dosage: 120 GTTES/J
     Route: 065
     Dates: start: 20160302
  21. PHENERGAN [Concomitant]
     Active Substance: PROMETHAZINE HYDROCHLORIDE
     Dosage: 3 COMP/J
     Route: 048
     Dates: start: 20160302
  22. CLOPIXOL                           /00876704/ [Concomitant]
     Active Substance: ZUCLOPENTHIXOL ACETATE
     Indication: PRODUCT USED FOR UNKNOWN INDICATION
     Dosage: 3 AMP/J
     Route: 065
     Dates: start: 20160215
  23. NOZINAN                            /00038601/ [Suspect]
     Active Substance: LEVOMEPROMAZINE
     Dosage: 300 GTTES/J
     Route: 048
     Dates: start: 20160218
  24. SOLIAN [Suspect]
     Active Substance: AMISULPRIDE
     Route: 048
     Dates: start: 20160307, end: 20160308
  25. LOXAPAC                            /00401801/ [Concomitant]
     Active Substance: LOXAPINE
     Dosage: MAXIMUM 6 AMP/24H
     Route: 065
     Dates: start: 20160208
  26. LOXAPAC                            /00401801/ [Concomitant]
     Active Substance: LOXAPINE
     Dosage: MAXIMUM 6 AMP/24H
     Route: 065
     Dates: start: 20160211
  27. NOZINAN                            /00038601/ [Suspect]
     Active Substance: LEVOMEPROMAZINE
     Dosage: 2000 MJ/J
     Route: 048
     Dates: start: 20160229
  28. NOZINAN                            /00038601/ [Suspect]
     Active Substance: LEVOMEPROMAZINE
     Dosage: 120 GTTES/J
     Route: 048
     Dates: start: 20160307
  29. NOZINAN                            /00038601/ [Suspect]
     Active Substance: LEVOMEPROMAZINE
     Dosage: 160 GTTES/J
     Route: 048
     Dates: start: 20160309
  30. NOZINAN                            /00038601/ [Suspect]
     Active Substance: LEVOMEPROMAZINE
     Dosage: MAXIMUM 6 AMP/24H
     Route: 048
     Dates: start: 20190307, end: 20190307
  31. LOXAPAC                            /00401801/ [Concomitant]
     Active Substance: LOXAPINE
     Indication: SEDATIVE THERAPY
     Dosage: 1 AMP/24H
     Route: 065
     Dates: start: 20160216
  32. LOXAPAC                            /00401801/ [Concomitant]
     Active Substance: LOXAPINE
     Dosage: MAXIMUM 100 MG/24H
     Route: 065
     Dates: start: 20160207
  33. HALDOL [Suspect]
     Active Substance: HALOPERIDOL
     Indication: PROPHYLAXIS
     Dosage: 300 GTTES/J
     Route: 065
     Dates: start: 20160216, end: 20160302
  34. NOZINAN                            /00038601/ [Suspect]
     Active Substance: LEVOMEPROMAZINE
     Dosage: 75 GTTES/J
     Route: 048
     Dates: start: 20160226
  35. NOZINAN                            /00038601/ [Suspect]
     Active Substance: LEVOMEPROMAZINE
     Dosage: 150 GTTES/J
     Route: 048
     Dates: start: 20160220
  36. SOLIAN [Suspect]
     Active Substance: AMISULPRIDE
     Indication: SEDATIVE THERAPY
     Route: 048
     Dates: start: 20160309, end: 20160310
  37. VALIUM [Concomitant]
     Active Substance: DIAZEPAM
     Dosage: 105 GTTES/J
     Route: 065
     Dates: start: 20160303
  38. VALIUM [Concomitant]
     Active Substance: DIAZEPAM
     Dosage: MAXIMUM 30 MG/24H
     Route: 030
     Dates: start: 20160307, end: 20160307
  39. MOVICOL APELSIN [Concomitant]
     Indication: CONSTIPATION
     Dosage: 2 SACHETS/J
     Route: 065
     Dates: start: 20160208
  40. NOZINAN                            /00038601/ [Suspect]
     Active Substance: LEVOMEPROMAZINE
     Dosage: 250 GTTES/J
     Route: 048
     Dates: start: 20160224
  41. VALIUM [Concomitant]
     Active Substance: DIAZEPAM
     Dosage: 90 DROP, QD
     Route: 048
     Dates: start: 20190307, end: 20190307
  42. LOXAPAC                            /00401801/ [Concomitant]
     Active Substance: LOXAPINE
     Dosage: 60 GTTES/J
     Route: 048
     Dates: start: 20160206
  43. TERCIAN                            /00759301/ [Concomitant]
     Active Substance: CYAMEMAZINE
     Indication: PRODUCT USED FOR UNKNOWN INDICATION
     Dosage: 300 GTTES/J
     Route: 048
     Dates: start: 20160213
  44. NOZINAN                            /00038601/ [Suspect]
     Active Substance: LEVOMEPROMAZINE
     Indication: SEDATIVE THERAPY
     Dosage: 1000 MG/J
     Route: 048
     Dates: start: 20160222
  45. NOZINAN                            /00038601/ [Suspect]
     Active Substance: LEVOMEPROMAZINE
     Dosage: 300 GTTES/J
     Route: 048
     Dates: start: 20160302
  46. VALIUM [Concomitant]
     Active Substance: DIAZEPAM
     Dosage: MAXIMUM 20 MG/24H
     Route: 065
     Dates: start: 20160207, end: 20160207
  47. VALIUM [Concomitant]
     Active Substance: DIAZEPAM
     Dosage: MAXIMUM 20 MG/24H
     Route: 042
     Dates: start: 20160208, end: 20160208
  48. PHENERGAN [Concomitant]
     Active Substance: PROMETHAZINE HYDROCHLORIDE
     Indication: PRODUCT USED FOR UNKNOWN INDICATION
     Dosage: 2 COMP/J
     Route: 048
     Dates: start: 20160303
  49. MOVICOL APELSIN [Concomitant]
     Dosage: 4 SACHETS/J
     Route: 065
     Dates: start: 20160309
  50. LOXAPAC                            /00401801/ [Concomitant]
     Active Substance: LOXAPINE
     Dosage: 200 GTTES/J
     Route: 048
     Dates: start: 20160208
  51. LOXAPAC                            /00401801/ [Concomitant]
     Active Substance: LOXAPINE
     Dosage: MAXIMUM 6 AMP/24H
     Route: 065
     Dates: start: 20160206
  52. TERCIAN                            /00759301/ [Concomitant]
     Active Substance: CYAMEMAZINE
     Dosage: MAXIMUM 6 AMP/24H
     Route: 030
     Dates: start: 20160213

REACTIONS (6)
  - Dysphagia [Unknown]
  - Postmortem blood drug level increased [Fatal]
  - Asphyxia [Fatal]
  - Antipsychotic drug level above therapeutic [Fatal]
  - Agitation [Unknown]
  - Cardio-respiratory arrest [Fatal]

NARRATIVE: CASE EVENT DATE: 201603
